FAERS Safety Report 16140672 (Version 2)
Quarter: 2019Q2

REPORT INFORMATION
  Report Type: Spontaneous
  Country: JP (occurrence: JP)
  Receive Date: 20190401
  Receipt Date: 20190624
  Transmission Date: 20190711
  Serious: Yes (Hospitalization, Other)
  Sender: FDA-Public Use
  Company Number: JP-SA-2019SA084994

PATIENT
  Age: 80 Year
  Sex: Male

DRUGS (6)
  1. ELPLAT [Suspect]
     Active Substance: OXALIPLATIN
     Indication: GASTRIC CANCER
     Dosage: UNK UNK, QD
     Route: 041
  2. ELPLAT [Suspect]
     Active Substance: OXALIPLATIN
     Dosage: UNK UNK, UNK
     Route: 065
  3. GIMERACIL;OTERACIL POTASSIUM;TEGAFUR [Suspect]
     Active Substance: GIMERACIL\OTERACIL\TEGAFUR
     Indication: GASTRIC CANCER
     Dosage: UNK UNK, QCY
     Route: 048
  4. ELPLAT [Suspect]
     Active Substance: OXALIPLATIN
     Dosage: UNK, QCY
     Route: 065
  5. GIMERACIL;OTERACIL POTASSIUM;TEGAFUR [Suspect]
     Active Substance: GIMERACIL\OTERACIL\TEGAFUR
     Dosage: UNK, QCY
     Route: 065
  6. GIMERACIL;OTERACIL POTASSIUM;TEGAFUR [Suspect]
     Active Substance: GIMERACIL\OTERACIL\TEGAFUR
     Dosage: UNK
     Route: 065

REACTIONS (11)
  - Nutritional condition abnormal [Recovering/Resolving]
  - Dysbiosis [Unknown]
  - Pleural effusion [Unknown]
  - Ascites [Recovering/Resolving]
  - Decreased appetite [Recovering/Resolving]
  - Renal impairment [Unknown]
  - Oedema [Recovering/Resolving]
  - Blood albumin decreased [Recovering/Resolving]
  - Diarrhoea [Recovering/Resolving]
  - Dehydration [Recovering/Resolving]
  - Swelling [Unknown]
